FAERS Safety Report 15145331 (Version 3)
Quarter: 2020Q3

REPORT INFORMATION
  Report Type: Spontaneous
  Country: US (occurrence: US)
  Receive Date: 20180713
  Receipt Date: 20200929
  Transmission Date: 20201102
  Serious: No
  Sender: FDA-Public Use
  Company Number: US-INTERCEPT-PMOCA2018000830

PATIENT
  Age: 62 Year
  Sex: Female

DRUGS (3)
  1. OCALIVA [Suspect]
     Active Substance: OBETICHOLIC ACID
     Dosage: 5 MG, QD
     Route: 048
     Dates: start: 20190717, end: 202002
  2. OCALIVA [Suspect]
     Active Substance: OBETICHOLIC ACID
     Dosage: 10 MG, QD
     Route: 048
     Dates: start: 202002
  3. OCALIVA [Suspect]
     Active Substance: OBETICHOLIC ACID
     Indication: PRIMARY BILIARY CHOLANGITIS
     Dosage: 5 MG, QD
     Route: 048
     Dates: start: 2017, end: 201801

REACTIONS (6)
  - Insurance issue [Recovered/Resolved]
  - Dry skin [Not Recovered/Not Resolved]
  - Product dose omission issue [Recovered/Resolved]
  - Pruritus [Recovering/Resolving]
  - Fatigue [Recovering/Resolving]
  - Blood alkaline phosphatase increased [Not Recovered/Not Resolved]

NARRATIVE: CASE EVENT DATE: 201801
